FAERS Safety Report 6784944-1 (Version None)
Quarter: 2010Q2

REPORT INFORMATION
  Report Type: 
  Country: None (occurrence: None)
  Receive Date: 20100618
  Receipt Date: 20100608
  Transmission Date: 20101027
  Serious: Yes (Hospitalization)
  Sender: FDA-Public Use
  Company Number: OMPQ-NO-1006S-0365

PATIENT
  Age: 59 Year
  Sex: Female

DRUGS (10)
  1. OMNIPAQUE 140 [Suspect]
     Indication: DRUG USE FOR UNKNOWN INDICATION
     Dosage: SINGLE DOSE, I.A.
     Route: 013
     Dates: start: 20100512, end: 20100512
  2. ASPIRIN [Suspect]
     Dosage: P.O.
     Route: 048
     Dates: start: 20100511, end: 20100513
  3. PLAVIX [Suspect]
     Dosage: P.O.
     Route: 048
     Dates: start: 20100511, end: 20100513
  4. LANSOPRAZOLE [Suspect]
     Dosage: P.O.
     Route: 048
     Dates: start: 20100511, end: 20100513
  5. KEFLEX [Suspect]
     Dosage: P.O.
     Route: 048
     Dates: start: 20100512, end: 20100513
  6. AMLODIPINE BESILATE (AMLODIN OD) [Concomitant]
  7. TRAPIDIL (ROCORNAL) [Concomitant]
  8. ASPARTATE POTASSIUM (ASPARA POTASSIUM) [Concomitant]
  9. LACTOBACILLUS ACIDOPHILUS, BACILLUS SUBTILIS, STREPTOCOCCUS FAECALIS ( [Concomitant]
  10. GLYCERYL TRINITRATE (NITRODERM) [Concomitant]

REACTIONS (4)
  - ERYTHEMA MULTIFORME [None]
  - FLUSHING [None]
  - GENERALISED ERYTHEMA [None]
  - PRURITUS GENERALISED [None]
